FAERS Safety Report 17244135 (Version 1)
Quarter: 2020Q1

REPORT INFORMATION
  Report Type: Spontaneous
  Country: US (occurrence: US)
  Receive Date: 20200107
  Receipt Date: 20200107
  Transmission Date: 20200409
  Serious: No
  Sender: FDA-Public Use
  Company Number: US-GALDERMA-US19050435

PATIENT
  Age: 33 Year
  Sex: Female

DRUGS (4)
  1. AZELAIC ACID. [Concomitant]
     Active Substance: AZELAIC ACID
     Indication: PERIORAL DERMATITIS
     Route: 065
  2. HYDROCORTISONE. [Concomitant]
     Active Substance: HYDROCORTISONE
     Indication: PERIORAL DERMATITIS
     Dosage: 2.5%
     Route: 061
  3. KETOCONAZOLE. [Concomitant]
     Active Substance: KETOCONAZOLE
     Indication: PERIORAL DERMATITIS
     Route: 065
  4. METRONIDAZOLE (METRONIDAZOLE) [Suspect]
     Active Substance: METRONIDAZOLE
     Indication: PERIORAL DERMATITIS
     Route: 065

REACTIONS (11)
  - Pruritus [Recovered/Resolved]
  - Normal newborn [Recovered/Resolved]
  - Skin exfoliation [Recovered/Resolved]
  - Product use in unapproved indication [Recovered/Resolved]
  - Pustule [Recovered/Resolved]
  - Maternal exposure during pregnancy [Recovered/Resolved]
  - Lip erythema [Recovered/Resolved]
  - Rash [Recovered/Resolved]
  - Swelling face [Recovered/Resolved]
  - Skin burning sensation [Recovered/Resolved]
  - Condition aggravated [Recovered/Resolved]
